FAERS Safety Report 7182958-3 (Version None)
Quarter: 2010Q4

REPORT INFORMATION
  Report Type: 
  Country: None (occurrence: None)
  Receive Date: 20101222
  Receipt Date: 20101207
  Transmission Date: 20110411
  Serious: Yes (Other)
  Sender: FDA-Public Use
  Company Number: US-JNJFOC-20101206757

PATIENT

DRUGS (5)
  1. DOXORUBICIN HCL [Suspect]
     Indication: MULTIPLE MYELOMA
     Dosage: DAYS 1 AND 15 PER CYCLE
     Route: 042
  2. BORTEZOMIB [Suspect]
     Indication: MULTIPLE MYELOMA
     Dosage: DAYS 1, 4, 15 AND 18
     Route: 042
  3. THALIDOMIDE [Suspect]
     Indication: MULTIPLE MYELOMA
     Route: 048
  4. ACYCLOVIR SODIUM [Suspect]
     Indication: HERPES ZOSTER
     Route: 048
  5. WARFARIN [Suspect]
     Indication: THROMBOSIS PROPHYLAXIS
     Dosage: 1 MG FOR PATIENTS { OR = TO 70 KG; AND 2 MG FOR PATIENTS } 70 KG
     Route: 065

REACTIONS (1)
  - BACTERAEMIA [None]
